FAERS Safety Report 7810803-9 (Version None)
Quarter: 2011Q4

REPORT INFORMATION
  Report Type: 
  Country: None (occurrence: None)
  Receive Date: 20111012
  Receipt Date: 20111012
  Transmission Date: 20120403
  Serious: Yes (Other)
  Sender: FDA-Public Use
  Company Number: None

PATIENT
  Age: 47 Year
  Sex: Female
  Weight: 51.7101 kg

DRUGS (1)
  1. DEXILANT [Suspect]
     Indication: GASTROOESOPHAGEAL REFLUX DISEASE
     Dosage: 60 MG TAB 1 ORAL
     Route: 048
     Dates: start: 20110930

REACTIONS (5)
  - CHILLS [None]
  - ABDOMINAL DISCOMFORT [None]
  - PYREXIA [None]
  - NAUSEA [None]
  - DIZZINESS [None]
